FAERS Safety Report 20319986 (Version 1)
Quarter: 2022Q1

REPORT INFORMATION
  Report Type: Spontaneous
  Country: JP (occurrence: JP)
  Receive Date: 20220111
  Receipt Date: 20220111
  Transmission Date: 20220423
  Serious: Yes (Hospitalization, Other)
  Sender: FDA-Public Use
  Company Number: JP-INGENUS PHARMACEUTICALS, LLC-2021INF000168

PATIENT
  Sex: Male

DRUGS (1)
  1. DOCETAXEL [Suspect]
     Active Substance: DOCETAXEL
     Indication: Extramammary Paget^s disease
     Dosage: MONTHLY
     Route: 065

REACTIONS (5)
  - Haemophagocytic lymphohistiocytosis [Unknown]
  - Septic shock [Recovering/Resolving]
  - Cellulitis streptococcal [Recovering/Resolving]
  - Disseminated intravascular coagulation [Recovered/Resolved]
  - Product use in unapproved indication [Unknown]
